FAERS Safety Report 7861400-0 (Version None)
Quarter: 2011Q4

REPORT INFORMATION
  Report Type: 
  Country: None (occurrence: None)
  Receive Date: 20111027
  Receipt Date: 20111017
  Transmission Date: 20120403
  Serious: Yes (Other)
  Sender: FDA-Public Use
  Company Number: JP-CEPHALON-2011005551

PATIENT
  Age: 71 Year
  Sex: Female

DRUGS (2)
  1. BENDAMUSTINE HCL [Suspect]
     Indication: B-CELL LYMPHOMA
     Route: 042
     Dates: start: 20111006
  2. RITUXIMAB [Concomitant]
     Dates: start: 20111005

REACTIONS (3)
  - ILEUS [None]
  - PYREXIA [None]
  - WHITE BLOOD CELL COUNT DECREASED [None]
